FAERS Safety Report 4352931-9 (Version None)
Quarter: 2004Q2

REPORT INFORMATION
  Report Type: 
  Country: None (occurrence: None)
  Receive Date: 20040429
  Receipt Date: 20040421
  Transmission Date: 20050107
  Serious: Yes (Other)
  Sender: FDA-Public Use
  Company Number: K200400607

PATIENT
  Age: 75 Year
  Sex: Female

DRUGS (7)
  1. ALTACE CAPSULES (RAMIPRIL) CASPULE, 2.5 MG [Suspect]
     Indication: ANGINA PECTORIS
     Dosage: 2.5 MG, QD, ORAL
     Route: 048
     Dates: start: 20040312, end: 20040404
  2. SIMVASTATIN [Concomitant]
  3. ASPIRIN [Concomitant]
  4. AMLODIPINE (AMLODIINE) [Concomitant]
  5. SALBUTAMOL (SLBUTAMOL) [Concomitant]
  6. FLUTICASONE PROPIONATE [Concomitant]
  7. SALMETEROL (SALMETEROL) [Concomitant]

REACTIONS (3)
  - BALANCE DISORDER [None]
  - DIZZINESS [None]
  - VISION BLURRED [None]
